FAERS Safety Report 8853310 (Version 1)
Quarter: 2012Q4

REPORT INFORMATION
  Report Type: 
  Country: TR (occurrence: TR)
  Receive Date: 20121022
  Receipt Date: 20121022
  Transmission Date: 20130627
  Serious: Yes (Hospitalization, Other)
  Sender: FDA-Public Use
  Company Number: TR-WATSON-2012-17816

PATIENT
  Age: 70 Year
  Sex: Female

DRUGS (1)
  1. LEVETIRACETAM (UNKNOWN) [Suspect]
     Indication: CONVULSION
     Dosage: 500 mg, bid
     Route: 065

REACTIONS (1)
  - Pemphigoid [Recovered/Resolved]
